FAERS Safety Report 10425012 (Version 4)
Quarter: 2015Q2

REPORT INFORMATION
  Report Type: Report from Study
  Country: AU (occurrence: AU)
  Receive Date: 20140902
  Receipt Date: 20150406
  Transmission Date: 20150821
  Serious: Yes (Other)
  Sender: FDA-Public Use
  Company Number: AU-SA-2014SA115997

PATIENT
  Age: 62 Year
  Sex: Female

DRUGS (10)
  1. MEGAFOL [Concomitant]
     Active Substance: FOLIC ACID
  2. MONODUR [Concomitant]
  3. IRBESARTAN. [Concomitant]
     Active Substance: IRBESARTAN
  4. CLOPIDOGREL [Concomitant]
     Active Substance: CLOPIDOGREL BISULFATE
  5. ASPIRIN. [Concomitant]
     Active Substance: ASPIRIN
  6. TEGRETOL [Concomitant]
     Active Substance: CARBAMAZEPINE
  7. CANAGLIFLOZIN [Concomitant]
     Active Substance: CANAGLIFLOZIN
     Indication: DIABETES MELLITUS
  8. AUBAGIO [Suspect]
     Active Substance: TERIFLUNOMIDE
     Indication: MULTIPLE SCLEROSIS
     Route: 048
     Dates: start: 20140725, end: 201502
  9. IRBESARTAN. [Concomitant]
     Active Substance: IRBESARTAN
  10. DIABEX [Concomitant]
     Active Substance: METFORMIN HYDROCHLORIDE

REACTIONS (5)
  - Diarrhoea [Not Recovered/Not Resolved]
  - Contusion [Recovering/Resolving]
  - Hypertension [Unknown]
  - Loss of consciousness [Unknown]
  - Rash pruritic [Recovering/Resolving]

NARRATIVE: CASE EVENT DATE: 2014
